FAERS Safety Report 4917327-7 (Version None)
Quarter: 2006Q1

REPORT INFORMATION
  Report Type: 
  Country: None (occurrence: None)
  Receive Date: 20060221
  Receipt Date: 20060210
  Transmission Date: 20060701
  Serious: Yes (Hospitalization)
  Sender: FDA-Public Use
  Company Number: US-MERCK-0602USA04179

PATIENT
  Age: 65 Year
  Sex: Female

DRUGS (8)
  1. HYDRODIURIL [Suspect]
     Route: 048
  2. VIOXX [Concomitant]
     Route: 048
  3. TRIMETHOBENZAMIDE HYDROCHLORIDE [Suspect]
     Indication: NAUSEA
     Route: 065
  4. PREMARIN [Concomitant]
     Route: 065
  5. MIDRIN [Concomitant]
     Route: 065
  6. PANTOPRAZOLE [Concomitant]
     Route: 065
  7. LEVOTHYROXINE SODIUM [Concomitant]
     Route: 065
  8. FLUOXETINE [Concomitant]
     Route: 065

REACTIONS (2)
  - CATATONIA [None]
  - HYPONATRAEMIA [None]
